FAERS Safety Report 20230415 (Version 2)
Quarter: 2022Q1

REPORT INFORMATION
  Report Type: Spontaneous
  Country: CA (occurrence: CA)
  Receive Date: 20211227
  Receipt Date: 20220120
  Transmission Date: 20220423
  Serious: Yes (Other)
  Sender: FDA-Public Use
  Company Number: CA-JNJFOC-20211252903

PATIENT
  Age: 50 Year
  Sex: Male
  Weight: 107 kg

DRUGS (2)
  1. INFLIXIMAB [Suspect]
     Active Substance: INFLIXIMAB
     Indication: Colitis ulcerative
     Route: 042
  2. PENTASA [Concomitant]
     Active Substance: MESALAMINE
     Route: 048

REACTIONS (7)
  - White blood cell count increased [Unknown]
  - Weight increased [Unknown]
  - Condition aggravated [Unknown]
  - Blood pressure increased [Unknown]
  - Drug specific antibody present [Unknown]
  - Therapeutic response shortened [Unknown]
  - Off label use [Unknown]
